FAERS Safety Report 23121878 (Version 6)
Quarter: 2024Q2

REPORT INFORMATION
  Report Type: Report from Study
  Country: CO (occurrence: CO)
  Receive Date: 20231030
  Receipt Date: 20240506
  Transmission Date: 20240716
  Serious: Yes (Other)
  Sender: FDA-Public Use
  Company Number: CO-TAKEDA-2020TUS059167

PATIENT
  Age: 45 Year
  Sex: Male
  Weight: 71 kg

DRUGS (1)
  1. VEDOLIZUMAB [Suspect]
     Active Substance: VEDOLIZUMAB
     Indication: Colitis ulcerative
     Dosage: 300 MILLIGRAM
     Route: 042
     Dates: start: 20201114

REACTIONS (17)
  - Haemorrhage [Recovered/Resolved]
  - Colitis ulcerative [Unknown]
  - Gastritis erosive [Unknown]
  - Diverticulitis [Unknown]
  - Large intestine polyp [Unknown]
  - Gastrointestinal pain [Not Recovered/Not Resolved]
  - Inappropriate schedule of product administration [Unknown]
  - Discomfort [Recovered/Resolved]
  - Weight increased [Recovering/Resolving]
  - Feeling hot [Recovering/Resolving]
  - Rash macular [Recovering/Resolving]
  - Body height increased [Unknown]
  - Weight decreased [Unknown]
  - Body height decreased [None]
  - Hyperhidrosis [Recovering/Resolving]
  - Erythema [Recovering/Resolving]
  - Muscle spasms [Recovered/Resolved]

NARRATIVE: CASE EVENT DATE: 20210313
